FAERS Safety Report 4963649-3 (Version None)
Quarter: 2006Q1

REPORT INFORMATION
  Report Type: 
  Country: None (occurrence: None)
  Receive Date: 20060330
  Receipt Date: 20060321
  Transmission Date: 20060701
  Serious: Yes (Hospitalization)
  Sender: FDA-Public Use
  Company Number: 2006039260

PATIENT
  Age: 72 Year
  Sex: Female
  Weight: 72 kg

DRUGS (6)
  1. ACCUPRIL [Suspect]
     Indication: CARDIAC FAILURE
     Dosage: (10 MG, UNKNOWN), ORAL
     Route: 048
     Dates: start: 20051101
  2. SPIRONOLACTONE [Suspect]
     Indication: CARDIAC FAILURE
     Dosage: 50 MG (50 MG, QD), ORAL
     Route: 048
     Dates: start: 20051101, end: 20060213
  3. POTASSIUM CHLORIDE [Suspect]
     Indication: CARDIAC FAILURE
     Dosage: (QD), ORAL
     Route: 048
     Dates: start: 20051215, end: 20060213
  4. AMARYL [Concomitant]
  5. GLUCOBAY (ACARBOSE) [Concomitant]
  6. CONCOR COR (BISOPROLOL) [Concomitant]

REACTIONS (8)
  - ASTHENIA [None]
  - ATRIOVENTRICULAR BLOCK SECOND DEGREE [None]
  - CARDIAC FAILURE CONGESTIVE [None]
  - CONDITION AGGRAVATED [None]
  - DRUG INTERACTION [None]
  - HYPERKALAEMIA [None]
  - PALPITATIONS [None]
  - VERTIGO [None]
